FAERS Safety Report 9046304 (Version 2)
Quarter: 2013Q1

REPORT INFORMATION
  Report Type: Spontaneous
  Country: BG (occurrence: BG)
  Receive Date: 20130201
  Receipt Date: 20130215
  Transmission Date: 20140127
  Serious: Yes (Death)
  Sender: FDA-Public Use
  Company Number: BG-JNJFOC-20130110405

PATIENT
  Sex: Male
  Weight: 72 kg

DRUGS (8)
  1. XEPLION [Suspect]
     Indication: SCHIZOPHRENIA, PARANOID TYPE
     Route: 030
     Dates: start: 20121222
  2. XEPLION [Suspect]
     Indication: SCHIZOPHRENIA, PARANOID TYPE
     Route: 030
     Dates: start: 20121228
  3. DEPAKINE [Concomitant]
     Indication: IMPULSIVE BEHAVIOUR
     Route: 048
     Dates: start: 201209
  4. DEPAKINE [Concomitant]
     Indication: ANXIETY
     Route: 048
     Dates: start: 201209
  5. PROMETHAZINE [Concomitant]
     Indication: IMPULSIVE BEHAVIOUR
     Route: 048
     Dates: start: 201209
  6. PROMETHAZINE [Concomitant]
     Indication: ANXIETY
     Route: 048
     Dates: start: 201209
  7. INVEGA [Concomitant]
     Indication: SCHIZOPHRENIA, PARANOID TYPE
     Route: 048
     Dates: start: 201212
  8. INVEGA [Concomitant]
     Indication: SCHIZOPHRENIA, PARANOID TYPE
     Route: 048
     Dates: start: 201209

REACTIONS (1)
  - Completed suicide [Fatal]
